FAERS Safety Report 8122121-2 (Version None)
Quarter: 2012Q1

REPORT INFORMATION
  Report Type: 
  Country: None (occurrence: None)
  Receive Date: 20120208
  Receipt Date: 20120130
  Transmission Date: 20120608
  Serious: Yes (Other)
  Sender: FDA-Public Use
  Company Number: CA-ROCHE-1037843

PATIENT
  Sex: Female

DRUGS (4)
  1. XOLAIR [Suspect]
     Indication: ASTHMA
     Route: 058
     Dates: start: 20110527
  2. PREDNISONE [Concomitant]
  3. SYMBICORT [Concomitant]
  4. SINGULAIR [Concomitant]

REACTIONS (2)
  - CONCUSSION [None]
  - LIGAMENT SPRAIN [None]
